FAERS Safety Report 6317518-7 (Version None)
Quarter: 2009Q3

REPORT INFORMATION
  Report Type: 
  Country: None (occurrence: None)
  Receive Date: 20090821
  Receipt Date: 20090820
  Transmission Date: 20100115
  Serious: Yes (Other)
  Sender: FDA-Public Use
  Company Number: IT-WYE-G04251709

PATIENT
  Sex: Male

DRUGS (6)
  1. TYGACIL [Suspect]
     Indication: KLEBSIELLA SEPSIS
     Route: 042
     Dates: start: 20090715, end: 20090811
  2. KCL-RETARD [Concomitant]
  3. FENTANYL [Concomitant]
  4. ESOMEPRAZOLE [Concomitant]
  5. MERREM [Suspect]
     Indication: SEPSIS
     Dates: start: 20090731, end: 20090811
  6. FUROSEMIDE [Concomitant]

REACTIONS (1)
  - LEUKOCYTOCLASTIC VASCULITIS [None]
